FAERS Safety Report 10511190 (Version 1)
Quarter: 2014Q4

REPORT INFORMATION
  Report Type: Spontaneous
  Country: US (occurrence: US)
  Receive Date: 20141010
  Receipt Date: 20141010
  Transmission Date: 20150528
  Serious: Yes (Other)
  Sender: FDA-Public Use
  Company Number: US-BAYER-2014-147829

PATIENT
  Age: 33 Year
  Sex: Female

DRUGS (2)
  1. HELIXATE FS [Suspect]
     Active Substance: ANTIHEMOPHILIC FACTOR, HUMAN RECOMBINANT
     Indication: HAEMOPHILIA
     Dosage: 3301, QOD
     Route: 042
     Dates: start: 20140903
  2. HELIXATE FS [Suspect]
     Active Substance: ANTIHEMOPHILIC FACTOR, HUMAN RECOMBINANT
     Indication: FACTOR VIII DEFICIENCY

REACTIONS (1)
  - Haemarthrosis [Unknown]

NARRATIVE: CASE EVENT DATE: 20140930
